FAERS Safety Report 20532486 (Version 3)
Quarter: 2022Q2

REPORT INFORMATION
  Report Type: Spontaneous
  Country: US (occurrence: US)
  Receive Date: 20220301
  Receipt Date: 20220513
  Transmission Date: 20220721
  Serious: No
  Sender: FDA-Public Use
  Company Number: US-SA-SAC20220223001115

PATIENT
  Age: 56 Year
  Sex: Female

DRUGS (1)
  1. DUPIXENT [Suspect]
     Active Substance: DUPILUMAB
     Indication: Dermatitis atopic
     Dosage: 300 MG, QOW
     Route: 058
     Dates: start: 202201

REACTIONS (5)
  - Hypertension [Recovering/Resolving]
  - Dizziness [Recovered/Resolved]
  - Dyspnoea [Recovering/Resolving]
  - Paraesthesia oral [Recovering/Resolving]
  - Tension headache [Recovering/Resolving]

NARRATIVE: CASE EVENT DATE: 20220211
